FAERS Safety Report 6473463-8 (Version None)
Quarter: 2009Q4

REPORT INFORMATION
  Report Type: 
  Country: None (occurrence: None)
  Receive Date: 20091204
  Receipt Date: 20090423
  Transmission Date: 20100525
  Serious: Yes (Hospitalization, Other)
  Sender: FDA-Public Use
  Company Number: US-ELI_LILLY_AND_COMPANY-US200811003088

PATIENT
  Sex: Male

DRUGS (1)
  1. CYMBALTA [Suspect]
     Indication: PAIN
     Dosage: 60 MG, DAILY (1/D)
     Dates: start: 20080101, end: 20081001

REACTIONS (4)
  - BACTERAEMIA [None]
  - HYPERSENSITIVITY [None]
  - RENAL FAILURE [None]
  - RHABDOMYOLYSIS [None]
